FAERS Safety Report 15790404 (Version 9)
Quarter: 2019Q3

REPORT INFORMATION
  Report Type: Spontaneous
  Country: US (occurrence: US)
  Receive Date: 20190104
  Receipt Date: 20190917
  Transmission Date: 20191004
  Serious: No
  Sender: FDA-Public Use
  Company Number: US-PFIZER INC-2018535289

PATIENT
  Age: 90 Year
  Sex: Female
  Weight: 75 kg

DRUGS (15)
  1. LYRICA [Suspect]
     Active Substance: PREGABALIN
     Indication: SPINAL DISORDER
     Dosage: 150 MG (THREE 50 MG CAPSULES)
  2. LYRICA [Suspect]
     Active Substance: PREGABALIN
     Dosage: 300 MG, AS NEEDED (BUT MAY BE A DAY)
  3. TRAMADOL HCL [Concomitant]
     Active Substance: TRAMADOL HYDROCHLORIDE
     Indication: BACK PAIN
     Dosage: 50 MG, 2X/DAY [DAILY]
     Dates: start: 201804
  4. CELEXA [Concomitant]
     Active Substance: CITALOPRAM HYDROBROMIDE
     Indication: ANTIDEPRESSANT THERAPY
     Dosage: 40 MG, 1X/DAY
  5. LYRICA [Suspect]
     Active Substance: PREGABALIN
     Indication: NEURALGIA
     Dosage: 75 MG, TWICE A DAY
     Route: 048
     Dates: start: 201804, end: 20190203
  6. LYRICA [Suspect]
     Active Substance: PREGABALIN
     Dosage: 50 MG, THREE TIMES A DAY
     Route: 048
     Dates: start: 201811
  7. LYRICA [Suspect]
     Active Substance: PREGABALIN
     Dosage: 150 MG, TWICE DAILY
     Route: 048
  8. OMEPRAZOLE. [Concomitant]
     Active Substance: OMEPRAZOLE
     Dosage: UNK
  9. ARICEPT [Concomitant]
     Active Substance: DONEPEZIL HYDROCHLORIDE
     Indication: MEMORY IMPAIRMENT
     Dosage: 10 MG, 1X/DAY [AT NIGHT TIME]
  10. CLONAZEPAM. [Concomitant]
     Active Substance: CLONAZEPAM
     Indication: SLEEP DISORDER
     Dosage: 0.5 MG, 1X/DAY [AT NIGHT]
  11. PEPCID [Concomitant]
     Active Substance: FAMOTIDINE
     Indication: ULCER
  12. IBUPROFEN. [Concomitant]
     Active Substance: IBUPROFEN
     Dosage: UNK
  13. TRAMADOL HCL [Concomitant]
     Active Substance: TRAMADOL HYDROCHLORIDE
     Indication: PAIN
     Dosage: 1 DF, 4X/DAY (EVERY 6 HOURS)
     Route: 048
  14. PEPCID [Concomitant]
     Active Substance: FAMOTIDINE
     Indication: GASTRIC DISORDER
     Dosage: 20 MG, 2X/DAY [ONCE IN THE MORNING AND ONCE AT NIGHT]
  15. LYRICA [Suspect]
     Active Substance: PREGABALIN
     Dosage: 150 MG, TWICE DAILY

REACTIONS (3)
  - Loss of personal independence in daily activities [Unknown]
  - Intentional product misuse [Unknown]
  - Drug ineffective [Unknown]

NARRATIVE: CASE EVENT DATE: 201804
